FAERS Safety Report 7129389 (Version 5)
Quarter: 2013Q2

REPORT INFORMATION
  Report Type: Report from Study
  Country: CZ (occurrence: CZ)
  Receive Date: 20090924
  Receipt Date: 20130628
  Transmission Date: 20140414
  Serious: Yes (Hospitalization)
  Sender: FDA-Public Use
  Company Number: PHHO2009CZ10654

PATIENT
  Sex: 0

DRUGS (1)
  1. ACZ885 [Suspect]
     Indication: GOUT
     Dosage: 25 MG, ONCE/SINGLE
     Dates: start: 20090619, end: 20090814

REACTIONS (4)
  - Erysipelas [Recovered/Resolved]
  - Blister [Recovered/Resolved]
  - Pyrexia [Recovered/Resolved]
  - Erythema [Recovered/Resolved]
